FAERS Safety Report 6738298-7 (Version None)
Quarter: 2010Q2

REPORT INFORMATION
  Report Type: 
  Country: None (occurrence: None)
  Receive Date: 20100524
  Receipt Date: 20100518
  Transmission Date: 20101027
  Serious: Yes (Other)
  Sender: FDA-Public Use
  Company Number: B0656779A

PATIENT
  Sex: Male

DRUGS (3)
  1. KIVEXA [Suspect]
     Indication: HIV INFECTION
     Route: 048
     Dates: start: 20100412, end: 20100505
  2. COMBIVIR [Concomitant]
     Dates: start: 20020501, end: 20100412
  3. STOCRIN [Concomitant]
     Route: 048
     Dates: start: 20020401

REACTIONS (5)
  - ABDOMINAL PAIN [None]
  - ASTHENIA [None]
  - DYSPNOEA [None]
  - HYPERHIDROSIS [None]
  - TREMOR [None]
